FAERS Safety Report 23028393 (Version 4)
Quarter: 2023Q4

REPORT INFORMATION
  Report Type: Spontaneous
  Country: US (occurrence: US)
  Receive Date: 20231004
  Receipt Date: 20231031
  Transmission Date: 20240110
  Serious: Yes (Disabling)
  Sender: FDA-Public Use
  Company Number: US-SA-SAC20230928001392

PATIENT
  Age: 28 Year
  Sex: Male
  Weight: 97 kg

DRUGS (1)
  1. DUPIXENT [Suspect]
     Active Substance: DUPILUMAB
     Indication: Eosinophilic oesophagitis
     Dosage: 300MG ,QW
     Route: 058
     Dates: start: 20230908, end: 20230922

REACTIONS (5)
  - Loss of personal independence in daily activities [Unknown]
  - Sciatica [Unknown]
  - Dyskinesia [Unknown]
  - Back pain [Recovering/Resolving]
  - Initial insomnia [Unknown]

NARRATIVE: CASE EVENT DATE: 20230901
